FAERS Safety Report 8854223 (Version 1)
Quarter: 2012Q4

REPORT INFORMATION
  Report Type: 
  Country: GB (occurrence: GB)
  Receive Date: 20121022
  Receipt Date: 20121022
  Transmission Date: 20130627
  Serious: Yes (Other)
  Sender: FDA-Public Use
  Company Number: GB-VERTEX PHARMACEUTICAL INC.-2012-023247

PATIENT
  Age: 50 Year
  Sex: Male
  Weight: 101.8 kg

DRUGS (3)
  1. INCIVO [Suspect]
     Indication: HEPATITIS C
     Dosage: Dosage Form: Tablet
     Route: 048
     Dates: start: 20120619, end: 20120910
  2. PEGASYS [Concomitant]
     Indication: HEPATITIS C
     Dosage: Dosage Form: Injection
     Route: 058
     Dates: start: 20120619
  3. COPEGUS [Concomitant]
     Indication: HEPATITIS C
     Dosage: Dosage Form: Tablets
     Route: 048
     Dates: start: 20120619

REACTIONS (1)
  - Blood creatinine increased [Recovered/Resolved]
